FAERS Safety Report 13530622 (Version 1)
Quarter: 2017Q2

REPORT INFORMATION
  Report Type: Spontaneous
  Country: JP (occurrence: JP)
  Receive Date: 20170510
  Receipt Date: 20170510
  Transmission Date: 20170830
  Serious: Yes (Hospitalization, Other)
  Sender: FDA-Public Use
  Company Number: JP-CHARTWELL PHARMA-2020501

PATIENT
  Age: 78 Year
  Sex: Male

DRUGS (12)
  1. AZOSEMIDE [Concomitant]
     Active Substance: AZOSEMIDE
  2. ISOSORBIDE DINITRATE. [Concomitant]
     Active Substance: ISOSORBIDE DINITRATE
  3. SITAGLIPTIN [Concomitant]
     Active Substance: SITAGLIPTIN
  4. DILTIAZEM. [Suspect]
     Active Substance: DILTIAZEM
     Indication: PRODUCT USED FOR UNKNOWN INDICATION
  5. FERROUS CITRATE [Concomitant]
     Active Substance: FERROUS CITRATE
  6. CLARITHROMYCIN. [Interacting]
     Active Substance: CLARITHROMYCIN
  7. IRBESARTAN. [Concomitant]
     Active Substance: IRBESARTAN
  8. WARFARIN SODIUM. [Concomitant]
     Active Substance: WARFARIN SODIUM
  9. RANITIDINE. [Concomitant]
     Active Substance: RANITIDINE
  10. DIPYRIDAMOLE. [Concomitant]
     Active Substance: DIPYRIDAMOLE
  11. NIFEDIPINE. [Interacting]
     Active Substance: NIFEDIPINE
  12. CARVEDILOL. [Interacting]
     Active Substance: CARVEDILOL

REACTIONS (2)
  - Hypotension [Unknown]
  - Drug interaction [Unknown]
